FAERS Safety Report 12679662 (Version 1)
Quarter: 2016Q3

REPORT INFORMATION
  Report Type: Spontaneous
  Country: US (occurrence: US)
  Receive Date: 20160824
  Receipt Date: 20160824
  Transmission Date: 20161109
  Serious: No
  Sender: FDA-Public Use
  Company Number: US-PFIZER INC-2016394833

PATIENT
  Age: 55 Year
  Sex: Female
  Weight: 61.23 kg

DRUGS (5)
  1. IBRANCE [Interacting]
     Active Substance: PALBOCICLIB
     Indication: BREAST CANCER
     Dosage: 125 MG, UNK
     Dates: start: 201508
  2. IBRANCE [Interacting]
     Active Substance: PALBOCICLIB
     Dosage: 100 MG, CYCLIC (ONE CAPSULE DAILY FOR 21 DAYS AND SEVEN DAYS OFF)
     Route: 048
     Dates: start: 201605
  3. FASLODEX [Concomitant]
     Active Substance: FULVESTRANT
     Indication: THERAPEUTIC RESPONSE INCREASED
     Dosage: TWO INJECTIONS IN THE BUTT ONE A MONTH
     Dates: start: 201508
  4. FLUCONAZOLE. [Suspect]
     Active Substance: FLUCONAZOLE
     Indication: COCCIDIOIDOMYCOSIS
     Dosage: 200MG TAKE TWO TABLETS DAILY
     Route: 048
     Dates: start: 201604
  5. FLUCONAZOLE. [Interacting]
     Active Substance: FLUCONAZOLE
     Dosage: 200MG FOUR TABLETS DAILY
     Route: 048
     Dates: start: 201606

REACTIONS (6)
  - Fungal skin infection [Unknown]
  - Alopecia [Unknown]
  - Platelet count decreased [Recovering/Resolving]
  - White blood cell count decreased [Recovering/Resolving]
  - Drug interaction [Unknown]
  - Red blood cell count decreased [Recovering/Resolving]

NARRATIVE: CASE EVENT DATE: 201604
